FAERS Safety Report 7275006-8 (Version None)
Quarter: 2011Q1

REPORT INFORMATION
  Report Type: 
  Country: None (occurrence: None)
  Receive Date: 20110204
  Receipt Date: 20101111
  Transmission Date: 20110831
  Serious: Yes (Other)
  Sender: FDA-Public Use
  Company Number: US-PFIZER INC-US-WYE-H17570110

PATIENT
  Sex: Female
  Weight: 54.422 kg

DRUGS (9)
  1. LYRICA [Suspect]
     Indication: PETIT MAL EPILEPSY
     Dosage: 300 MG, 4X/DAY
  2. LUNESTA [Concomitant]
     Dosage: 3 MG, 1X/DAY
  3. CHANTIX [Suspect]
     Indication: EX-TOBACCO USER
     Dosage: UNK
     Dates: start: 20100806
  4. DAYPRO [Concomitant]
     Dosage: 1200 MG, 1X/DAY
  5. RELISTOR [Suspect]
     Indication: CONSTIPATION
     Dosage: 12 MG 1 TIMES PER 2 DAY
     Route: 058
     Dates: start: 20100903
  6. NORCO [Concomitant]
     Dosage: 20/650 MG, 4X/DAY AS NEEDED
     Route: 065
  7. TOPAMAX [Concomitant]
     Indication: PETIT MAL EPILEPSY
     Dosage: 100 MG, 3X/DAY
  8. CYMBALTA [Concomitant]
     Dosage: 120 MG, 1X/DAY
  9. DURAGESIC-50 [Concomitant]
     Dosage: 50 UG 1 TIMES PER 48 HR
     Route: 061

REACTIONS (3)
  - FALL [None]
  - NEEDLE ISSUE [None]
  - GRAND MAL CONVULSION [None]
